FAERS Safety Report 5363016-7 (Version None)
Quarter: 2007Q2

REPORT INFORMATION
  Report Type: 
  Country: None (occurrence: None)
  Receive Date: 20070618
  Receipt Date: 20070605
  Transmission Date: 20071010
  Serious: Yes (Hospitalization)
  Sender: FDA-Public Use
  Company Number: 2007SP002213

PATIENT
  Age: 48 Year
  Sex: Male
  Weight: 103.7 kg

DRUGS (9)
  1. XOPENEX [Suspect]
     Indication: CHRONIC OBSTRUCTIVE PULMONARY DISEASE
     Dosage: 90 UG; PRN; INHALATION
     Route: 055
     Dates: start: 20070301
  2. ALBUTEROL [Concomitant]
  3. LORTAB [Concomitant]
  4. WELLBUTRIN [Concomitant]
  5. NABUMETONE [Concomitant]
  6. PROTONIX [Concomitant]
  7. ALTACE [Concomitant]
  8. AVINZA [Concomitant]
  9. ALLEGRA [Concomitant]

REACTIONS (3)
  - ANION GAP INCREASED [None]
  - BLOOD GLUCOSE INCREASED [None]
  - SMALL INTESTINAL OBSTRUCTION [None]
